FAERS Safety Report 25042658 (Version 1)
Quarter: 2025Q1

REPORT INFORMATION
  Report Type: Spontaneous
  Country: KW (occurrence: KW)
  Receive Date: 20250305
  Receipt Date: 20250305
  Transmission Date: 20250408
  Serious: Yes (Other)
  Sender: ELI LILLY AND COMPANY
  Company Number: KW-Merck Healthcare KGaA-2025009361

PATIENT
  Age: 62 Year
  Sex: Male

DRUGS (1)
  1. ERBITUX [Suspect]
     Active Substance: CETUXIMAB
     Indication: Product used for unknown indication
     Route: 065

REACTIONS (11)
  - Laryngeal oedema [Unknown]
  - Dysphonia [Unknown]
  - Dysphagia [Unknown]
  - Pain [Unknown]
  - Cough [Unknown]
  - Abdominal pain upper [Unknown]
  - Acne [Unknown]
  - Mucosal inflammation [Unknown]
  - Nausea [Unknown]
  - Vomiting [Unknown]
  - Diarrhoea [Unknown]
